FAERS Safety Report 7147540-2 (Version None)
Quarter: 2010Q4

REPORT INFORMATION
  Report Type: 
  Country: None (occurrence: None)
  Receive Date: 20101209
  Receipt Date: 20030723
  Transmission Date: 20110411
  Serious: Yes (Death, Hospitalization)
  Sender: FDA-Public Use
  Company Number: US-ACTELION-A-US2003-03065

PATIENT

DRUGS (9)
  1. BOSENTAN TABLET 62.5 MG US [Suspect]
     Indication: PULMONARY ARTERIAL HYPERTENSION
     Dosage: 62.5 MG, BID
     Route: 048
     Dates: start: 20030301
  2. BOSENTAN TABLET 62.5 MG US [Suspect]
     Dosage: 125 MG, BID
  3. CYTOXAN [Concomitant]
  4. PREDNISONE [Concomitant]
  5. LASIX [Concomitant]
  6. PANTOPRAZOLE [Concomitant]
  7. NITROGLYCERIN [Concomitant]
  8. PROCARDIA [Concomitant]
  9. KEFLEX [Concomitant]

REACTIONS (1)
  - DEATH [None]
